FAERS Safety Report 4276656-3 (Version None)
Quarter: 2004Q1

REPORT INFORMATION
  Report Type: 
  Country: None (occurrence: None)
  Receive Date: 20040120
  Receipt Date: 20040113
  Transmission Date: 20041129
  Serious: Yes (Hospitalization)
  Sender: FDA-Public Use
  Company Number: TPA2004A00041

PATIENT
  Sex: Female

DRUGS (5)
  1. ACTOS [Suspect]
     Indication: DIABETES MELLITUS NON-INSULIN-DEPENDENT
     Dosage: 45 MG, 1 IN 1 D, PER ORAL
     Route: 048
  2. LANTUS [Concomitant]
  3. METFORMIN HCL [Concomitant]
  4. UNKNOWN SULFONYLUREA (ORAL ANTIDIABETICS) [Concomitant]
  5. UNKNOWN BACK MEDICATION (OTHER ANALGESICS AND ANTIPYRETICS) [Concomitant]

REACTIONS (3)
  - DENTAL CARIES [None]
  - SURGERY [None]
  - TOOTH FRACTURE [None]
